FAERS Safety Report 8860327 (Version 2)
Quarter: 2012Q4

REPORT INFORMATION
  Report Type: 
  Country: US (occurrence: US)
  Receive Date: 20121025
  Receipt Date: 20121128
  Transmission Date: 20130627
  Serious: No
  Sender: FDA-Public Use
  Company Number: US-PFIZER INC-2012264710

PATIENT
  Age: 89 Year
  Sex: Male
  Weight: 61.68 kg

DRUGS (7)
  1. LIPITOR [Suspect]
     Indication: HIGH CHOLESTEROL
     Dosage: 10 mg, 1x/day
     Route: 048
  2. LIPITOR [Suspect]
     Dosage: 10 mg, 1x/day
     Route: 048
     Dates: start: 201210
  3. NORVASC [Concomitant]
     Indication: BLOOD PRESSURE HIGH
     Dosage: UNK
  4. ATENOLOL [Concomitant]
     Dosage: UNK
  5. JALYN [Concomitant]
     Indication: PROSTATIC DISORDER
     Dosage: UNK
  6. ASPIRIN [Concomitant]
     Dosage: 81 mg, UNK
  7. PLAVIX [Concomitant]
     Dosage: UNK

REACTIONS (4)
  - Memory impairment [Unknown]
  - Dysstasia [Unknown]
  - Arthralgia [Unknown]
  - Tenderness [Unknown]
